FAERS Safety Report 20707867 (Version 1)
Quarter: 2022Q2

REPORT INFORMATION
  Report Type: Report from Study
  Country: JP (occurrence: JP)
  Receive Date: 20220414
  Receipt Date: 20220414
  Transmission Date: 20220721
  Serious: Yes (Hospitalization, Other)
  Sender: FDA-Public Use
  Company Number: JP-AMGEN-JPNCT2022060849

PATIENT
  Age: 74 Year
  Sex: Female
  Weight: 56.1 kg

DRUGS (11)
  1. AMG-510 [Suspect]
     Active Substance: AMG-510
     Indication: Non-small cell lung cancer
     Dosage: 960 MILLIGRAM, QD
     Route: 048
     Dates: start: 20220302, end: 20220322
  2. AMG-510 [Suspect]
     Active Substance: AMG-510
     Dosage: 960 MILLIGRAM, QD
     Route: 048
     Dates: start: 20220325
  3. MIRABEGRON [Concomitant]
     Active Substance: MIRABEGRON
     Indication: Hypertonic bladder
     Dosage: 50 MILLIGRAM, QD
     Route: 048
     Dates: start: 2020
  4. SHIN BIOFERMIN S [Concomitant]
     Indication: Constipation
     Dosage: UNK
     Route: 048
  5. GLYCOSAMINOGLYCANS [Concomitant]
     Active Substance: GLYCOSAMINOGLYCANS
     Dosage: UNK UNK, TID
     Route: 061
  6. LOCOID [Concomitant]
     Active Substance: HYDROCORTISONE BUTYRATE
     Indication: Pruritus
     Dosage: UNK UNK, AS NECESSARY
     Route: 061
  7. PANVITAN [ASCORBIC ACID;DEXPANTHENOL;ERGOCALCIFEROL;NICOTINAMIDE;PYRID [Concomitant]
     Indication: Prophylaxis
     Dosage: 1 GRAM, QD
     Dates: start: 20220222
  8. FRESMIN S [HYDROXOCOBALAMIN ACETATE] [Concomitant]
     Indication: Prophylaxis
     Dosage: 1000 MICROGRAM, Q9WK
     Route: 030
     Dates: start: 20220222
  9. OLODATEROL HYDROCHLORIDE\TIOTROPIUM BROMIDE MONOHYDRATE [Concomitant]
     Active Substance: OLODATEROL HYDROCHLORIDE\TIOTROPIUM BROMIDE MONOHYDRATE
     Indication: Chronic obstructive pulmonary disease
     Dosage: 2 PUFFS, QD
     Dates: start: 20220304
  10. CARBOPLATIN [Concomitant]
     Active Substance: CARBOPLATIN
     Indication: Non-small cell lung cancer
     Dosage: UNK UNK, Q3WK
     Route: 065
     Dates: start: 20220302
  11. ALIMTA [Concomitant]
     Active Substance: PEMETREXED DISODIUM
     Indication: Non-small cell lung cancer
     Dosage: 500 MICROGRAM/SQ. METER, Q3WK
     Route: 065
     Dates: start: 20220302

REACTIONS (1)
  - Cholecystitis [Recovered/Resolved]

NARRATIVE: CASE EVENT DATE: 20220319
